FAERS Safety Report 10052138 (Version 3)
Quarter: 2014Q2

REPORT INFORMATION
  Report Type: Spontaneous
  Country: HK (occurrence: HK)
  Receive Date: 20140402
  Receipt Date: 20140421
  Transmission Date: 20141212
  Serious: Yes (Death, Other)
  Sender: FDA-Public Use
  Company Number: HK-009507513-1403HKG011962

PATIENT
  Sex: 0

DRUGS (3)
  1. IVERMECTIN [Suspect]
     Indication: PYREXIA
     Dosage: 3 MG, UNK
     Route: 048
     Dates: start: 201401
  2. IVERMECTIN [Suspect]
     Indication: ACUTE RESPIRATORY DISTRESS SYNDROME
  3. MYCOPHENOLATE MOFETIL [Suspect]
     Indication: IMMUNOSUPPRESSION

REACTIONS (2)
  - Thrombotic thrombocytopenic purpura [Fatal]
  - Multi-organ failure [Fatal]
